FAERS Safety Report 4626397-5 (Version None)
Quarter: 2005Q1

REPORT INFORMATION
  Report Type: 
  Country: None (occurrence: None)
  Receive Date: 20050330
  Receipt Date: 20050311
  Transmission Date: 20050727
  Serious: Yes (Other)
  Sender: FDA-Public Use
  Company Number: US_0503114459

PATIENT
  Age: 49 Year
  Sex: Female
  Weight: 80 kg

DRUGS (7)
  1. ZYPREXA [Suspect]
     Dosage: 2.5 MG AT BEDTIME
     Dates: start: 20001204
  2. LIPITOR [Concomitant]
  3. ATENOLOL [Concomitant]
  4. EASPIRIN (ACETYLSALICYLIC ACID) [Concomitant]
  5. CHLORPROMAZINE [Concomitant]
  6. ACCUPRIL [Concomitant]
  7. NORVASC [Concomitant]

REACTIONS (17)
  - ANAEMIA [None]
  - BLOOD ALKALINE PHOSPHATASE INCREASED [None]
  - BLOOD CHOLESTEROL INCREASED [None]
  - BLOOD GLUCOSE INCREASED [None]
  - BLOOD TRIGLYCERIDES INCREASED [None]
  - CATARACT [None]
  - GLUCOSE URINE [None]
  - HYPERPHAGIA [None]
  - INSOMNIA [None]
  - MICROALBUMINURIA [None]
  - POLLAKIURIA [None]
  - RETINOPATHY HYPERTENSIVE [None]
  - THIRST [None]
  - URINARY TRACT INFECTION [None]
  - VOMITING [None]
  - WEIGHT DECREASED [None]
  - WHITE BLOOD CELL COUNT INCREASED [None]
